FAERS Safety Report 5267379-2 (Version None)
Quarter: 2007Q1

REPORT INFORMATION
  Report Type: 
  Country: None (occurrence: None)
  Receive Date: 20070316
  Receipt Date: 20070307
  Transmission Date: 20070707
  Serious: Yes (Hospitalization)
  Sender: FDA-Public Use
  Company Number: GB-ROCHE-482739

PATIENT
  Age: 65 Year
  Sex: Male
  Weight: 82 kg

DRUGS (2)
  1. XELODA [Suspect]
     Indication: COLORECTAL CANCER
     Route: 048
     Dates: start: 20061108
  2. IMODIUM [Concomitant]
     Route: 048
     Dates: start: 20061215, end: 20070115

REACTIONS (2)
  - CROHN'S DISEASE [None]
  - ENTERITIS [None]
